FAERS Safety Report 4872218-5 (Version None)
Quarter: 2005Q4

REPORT INFORMATION
  Report Type: 
  Country: None (occurrence: None)
  Receive Date: 20051201
  Receipt Date: 20050802
  Transmission Date: 20060501
  Serious: No
  Sender: FDA-Public Use
  Company Number: 2005PV000755

PATIENT
  Age: 71 Year
  Sex: Female
  Weight: 71.6683 kg

DRUGS (15)
  1. BYETTA [Suspect]
     Indication: DIABETES MELLITUS NON-INSULIN-DEPENDENT
     Dosage: 5 MCG; BID; SC
     Route: 058
     Dates: start: 20050727
  2. TRENTAL [Concomitant]
  3. COUMADIN [Concomitant]
  4. COREG [Concomitant]
  5. DIGITEK [Concomitant]
  6. LIPITOR [Concomitant]
  7. AMIODARONE HCL [Concomitant]
  8. SYNTHROID [Concomitant]
  9. FUROSEMIDE [Concomitant]
  10. AMITRIPTYLINE HCL [Concomitant]
  11. DIOVAN [Concomitant]
  12. LANTUS [Concomitant]
  13. NOVOLOG [Concomitant]
  14. STARLIX [Concomitant]
  15. ZETIA [Concomitant]

REACTIONS (7)
  - ASTHENIA [None]
  - BLOOD GLUCOSE DECREASED [None]
  - BLOOD PRESSURE DECREASED [None]
  - DECREASED APPETITE [None]
  - DIZZINESS [None]
  - DYSPNOEA [None]
  - FATIGUE [None]
